FAERS Safety Report 15225137 (Version 3)
Quarter: 2020Q1

REPORT INFORMATION
  Report Type: Spontaneous
  Country: IT (occurrence: IT)
  Receive Date: 20180801
  Receipt Date: 20200117
  Transmission Date: 20200409
  Serious: Yes (Other)
  Sender: FDA-Public Use
  Company Number: IT-ROCHE-2158585

PATIENT
  Age: 69 Year
  Sex: Female

DRUGS (1)
  1. VISMODEGIB. [Suspect]
     Active Substance: VISMODEGIB
     Indication: BASAL CELL CARCINOMA
     Route: 065

REACTIONS (5)
  - Cholestatic liver injury [Recovering/Resolving]
  - Dysgeusia [Unknown]
  - Eosinophilia [Unknown]
  - Rash [Unknown]
  - Alopecia [Unknown]
